FAERS Safety Report 15308020 (Version 1)
Quarter: 2018Q3

REPORT INFORMATION
  Report Type: Report from Study
  Country: US (occurrence: US)
  Receive Date: 20180822
  Receipt Date: 20180822
  Transmission Date: 20181010
  Serious: Yes (Hospitalization)
  Sender: FDA-Public Use
  Company Number: US-SHIRE-US201832202

PATIENT
  Sex: Female
  Weight: 96.6 kg

DRUGS (1)
  1. FIRAZYR [Suspect]
     Active Substance: ICATIBANT ACETATE
     Indication: IMMUNE SYSTEM DISORDER
     Dosage: UNK, AS REQ^D
     Route: 058
     Dates: start: 20170610

REACTIONS (1)
  - Hereditary angioedema [Not Recovered/Not Resolved]
